FAERS Safety Report 13130406 (Version 1)
Quarter: 2017Q1

REPORT INFORMATION
  Report Type: Report from Study
  Country: US (occurrence: US)
  Receive Date: 20170119
  Receipt Date: 20170119
  Transmission Date: 20170428
  Serious: Yes (Hospitalization)
  Sender: FDA-Public Use
  Company Number: US-PFIZER INC-2017012469

PATIENT
  Age: 60 Year
  Sex: Female
  Weight: 55.33 kg

DRUGS (11)
  1. ERBITUX [Concomitant]
     Active Substance: CETUXIMAB
     Dosage: 1 DF, 2X/WEEK
     Route: 042
  2. OPDIVO [Concomitant]
     Active Substance: NIVOLUMAB
     Indication: COLON CANCER
     Dosage: 1 DF, 2X/WEEK
     Route: 042
  3. POTASSIUM [Concomitant]
     Active Substance: POTASSIUM
     Dosage: UNK
  4. LONSURF [Suspect]
     Active Substance: TIPIRACIL HYDROCHLORIDE\TRIFLURIDINE
     Indication: COLON CANCER
     Dosage: 60 MG, 2X/DAY
     Route: 048
     Dates: start: 20161010
  5. PRISTIQ EXTENDED-RELEASE [Concomitant]
     Active Substance: DESVENLAFAXINE SUCCINATE
     Dosage: UNK
  6. VALACYCLOVIR HYDROCHLORIDE. [Concomitant]
     Active Substance: VALACYCLOVIR HYDROCHLORIDE
     Dosage: UNK
  7. LEVAQUIN [Concomitant]
     Active Substance: LEVOFLOXACIN
     Dosage: UNK
  8. IRINOTECAN HCL [Suspect]
     Active Substance: IRINOTECAN HYDROCHLORIDE
     Indication: COLON CANCER
     Dosage: UNK
     Route: 042
  9. RANITIDINE. [Concomitant]
     Active Substance: RANITIDINE
     Dosage: UNK
  10. LONSURF [Suspect]
     Active Substance: TIPIRACIL HYDROCHLORIDE\TRIFLURIDINE
     Indication: APPENDIX CANCER
     Dosage: 60 MG, CYCLIC (CYCLE 2 STARTED, 2 IN 1 D, BID)
     Route: 048
     Dates: start: 201608, end: 20161124
  11. LEVOFLOXACIN. [Concomitant]
     Active Substance: LEVOFLOXACIN
     Dosage: UNK

REACTIONS (21)
  - Febrile neutropenia [Unknown]
  - Stress [Unknown]
  - Vomiting [Unknown]
  - Hepatic enzyme increased [Unknown]
  - Diarrhoea [Unknown]
  - Nausea [Unknown]
  - Jaundice [Unknown]
  - Red blood cell count decreased [Unknown]
  - Appetite disorder [Unknown]
  - Malaise [Unknown]
  - Blood potassium decreased [Unknown]
  - Abdominal pain [Unknown]
  - Bile duct obstruction [Unknown]
  - Weight decreased [Unknown]
  - Clostridium difficile infection [Unknown]
  - Abdominal pain upper [Unknown]
  - Dehydration [Unknown]
  - Gastric disorder [Unknown]
  - Decreased appetite [Unknown]
  - Ureteric obstruction [Unknown]
  - White blood cell count decreased [Unknown]

NARRATIVE: CASE EVENT DATE: 2016
